FAERS Safety Report 4839418-1 (Version None)
Quarter: 2005Q4

REPORT INFORMATION
  Report Type: 
  Country: None (occurrence: None)
  Receive Date: 20051129
  Receipt Date: 20050324
  Transmission Date: 20060501
  Serious: No
  Sender: FDA-Public Use
  Company Number: US-GLAXOSMITHKLINE-A0551117A

PATIENT
  Sex: Male

DRUGS (8)
  1. WELLBUTRIN SR [Suspect]
     Indication: DEPRESSION
     Dosage: 150MG PER DAY
     Route: 048
     Dates: start: 20050101
  2. ATIVAN [Concomitant]
  3. DARVOCET [Concomitant]
  4. MOTRIN [Concomitant]
  5. KETEK [Concomitant]
  6. EFFEXOR [Concomitant]
  7. PROZAC [Concomitant]
  8. ZOLOFT [Concomitant]

REACTIONS (8)
  - AGITATION [None]
  - ANXIETY [None]
  - DRY MOUTH [None]
  - HYPERTENSION [None]
  - IRRITABILITY [None]
  - MOOD ALTERED [None]
  - PSYCHOMOTOR HYPERACTIVITY [None]
  - TINNITUS [None]
